FAERS Safety Report 8202772-7 (Version None)
Quarter: 2012Q1

REPORT INFORMATION
  Report Type: 
  Country: None (occurrence: None)
  Receive Date: 20120312
  Receipt Date: 20120312
  Transmission Date: 20120608
  Serious: Yes (Hospitalization)
  Sender: FDA-Public Use
  Company Number: None

PATIENT
  Age: 44 Year
  Sex: Female
  Weight: 74.8 kg

DRUGS (3)
  1. NEULASTA [Concomitant]
     Dosage: 0.6 MG
     Route: 058
     Dates: start: 20120208, end: 20120208
  2. NEULASTA [Suspect]
     Indication: NEUTROPENIA
     Dosage: 0.6 MG
     Route: 058
     Dates: start: 20120208, end: 20120208
  3. NEULASTA [Suspect]
     Indication: PROPHYLAXIS
     Dosage: 0.6 MG
     Route: 058
     Dates: start: 20120208, end: 20120208

REACTIONS (8)
  - LIP SWELLING [None]
  - DYSPHAGIA [None]
  - DYSPNOEA [None]
  - URTICARIA [None]
  - PHARYNGEAL OEDEMA [None]
  - SWELLING FACE [None]
  - HYPOAESTHESIA [None]
  - LATEX ALLERGY [None]
